FAERS Safety Report 6626136-2 (Version None)
Quarter: 2010Q1

REPORT INFORMATION
  Report Type: 
  Country: None (occurrence: None)
  Receive Date: 20100310
  Receipt Date: 20100225
  Transmission Date: 20100710
  Serious: Yes (Hospitalization)
  Sender: FDA-Public Use
  Company Number: PHEH2010US02759

PATIENT
  Sex: Female

DRUGS (4)
  1. RITALIN [Suspect]
  2. TRAZODONE HCL [Concomitant]
  3. CALCIUM [Concomitant]
  4. DIURETICS [Concomitant]

REACTIONS (3)
  - CARDIAC FAILURE CONGESTIVE [None]
  - DIABETES MELLITUS [None]
  - RENAL IMPAIRMENT [None]
